FAERS Safety Report 8526984 (Version 2)
Quarter: 2013Q2

REPORT INFORMATION
  Report Type: Spontaneous
  Country: US (occurrence: US)
  Receive Date: 20120424
  Receipt Date: 20130517
  Transmission Date: 20140414
  Serious: Yes (Hospitalization)
  Sender: FDA-Public Use
  Company Number: US-BAYER-2012-038639

PATIENT
  Age: 35 Year
  Sex: Female

DRUGS (13)
  1. YAZ [Suspect]
     Indication: MENSTRUAL CYCLE MANAGEMENT
     Dosage: UNK
     Dates: start: 200710, end: 201110
  2. YAZ [Suspect]
     Indication: ACNE
  3. GIANVI [Suspect]
     Dosage: UNK
     Dates: start: 200710, end: 201110
  4. LEXAPRO [Concomitant]
     Dosage: 10 MG, DAILY, LONG TERM
  5. CELEXA [Concomitant]
     Dosage: 10 MG, DAILY
     Dates: start: 20110815
  6. SYMBICORT [Concomitant]
     Dosage: UNK UNK, BID
     Dates: start: 20111004
  7. SYMBICORT [Concomitant]
     Dosage: ONE PUFF TWICE DAILY
     Route: 048
     Dates: start: 20111004
  8. ZYRTEC [Concomitant]
     Dosage: UNK
     Dates: start: 20111004
  9. ANAVAR [Concomitant]
     Dosage: UNK
     Dates: start: 20111006
  10. Z-PAK [Concomitant]
     Dosage: UNK
     Dates: start: 20111006
  11. CITALOPRAM [Concomitant]
     Dosage: 10 MG, UNK
     Route: 048
     Dates: start: 20110916
  12. AZITHROMYCIN [Concomitant]
     Dosage: 150 MG, UNK
     Route: 048
     Dates: start: 20111004
  13. VENTOLIN [Concomitant]
     Dosage: UNK UNK, BID
     Route: 048
     Dates: start: 20111004

REACTIONS (8)
  - Pulmonary embolism [None]
  - Pulmonary infarction [None]
  - Pain [None]
  - Injury [None]
  - General physical health deterioration [None]
  - Emotional distress [None]
  - Pain [None]
  - Anxiety [None]
